FAERS Safety Report 4453241-1 (Version None)
Quarter: 2004Q3

REPORT INFORMATION
  Report Type: 
  Country: None (occurrence: None)
  Receive Date: 20040920
  Receipt Date: 20040908
  Transmission Date: 20050211
  Serious: Yes (Hospitalization)
  Sender: FDA-Public Use
  Company Number: SE-BRISTOL-MYERS SQUIBB COMPANY-12697769

PATIENT
  Age: 51 Year
  Sex: Male

DRUGS (3)
  1. VIDEX EC [Suspect]
     Indication: HIV INFECTION
     Route: 048
     Dates: start: 20021023
  2. KALETRA [Suspect]
     Indication: HIV INFECTION
     Dosage: DOSAGE FORM: SOFT CAPSULE
     Route: 048
     Dates: start: 20021023
  3. COMBIVIR [Suspect]
     Indication: HIV INFECTION
     Dosage: DOSAGE FORM: FILM-COATED TABLET
     Route: 048
     Dates: start: 20021023

REACTIONS (1)
  - PULMONARY EMBOLISM [None]
